FAERS Safety Report 7236712-4 (Version None)
Quarter: 2011Q1

REPORT INFORMATION
  Report Type: 
  Country: None (occurrence: None)
  Receive Date: 20110120
  Receipt Date: 20110113
  Transmission Date: 20110831
  Serious: Yes (Hospitalization)
  Sender: FDA-Public Use
  Company Number: IT-GILEAD-E2B_00000807

PATIENT
  Sex: Male

DRUGS (10)
  1. TRIATEC [Concomitant]
     Indication: HYPERTENSION
     Dosage: 5MG PER DAY
     Route: 048
     Dates: start: 20010101
  2. CATAPRESAN [Concomitant]
     Indication: HYPERTENSION
     Route: 062
     Dates: start: 20090101
  3. AMBRISENTAN [Suspect]
     Indication: PULMONARY ARTERIAL HYPERTENSION
     Dosage: 5MG PER DAY
     Route: 048
     Dates: start: 20100604, end: 20100727
  4. MEDROL [Concomitant]
     Indication: SYSTEMIC SCLEROSIS
     Dosage: 4MG PER DAY
     Route: 048
     Dates: start: 20090101
  5. PEPTAZOL [Concomitant]
     Indication: SYSTEMIC SCLEROSIS
     Dosage: 40MG PER DAY
     Route: 048
     Dates: start: 20050101
  6. AZATIOPRINA [Concomitant]
     Indication: SYSTEMIC SCLEROSIS
     Dosage: 50MG EVERY 3 DAYS
     Route: 048
     Dates: start: 20080101
  7. NORVASC [Concomitant]
     Indication: HYPERTENSION
     Dosage: 5MG SINGLE DOSE
     Route: 048
     Dates: start: 20100101
  8. ALLOPURINOL [Concomitant]
     Indication: HYPERCHOLESTEROLAEMIA
     Dosage: 300MG PER DAY
     Route: 048
     Dates: start: 20090101
  9. MINITRAN [Concomitant]
     Indication: SYSTEMIC SCLEROSIS
     Route: 062
     Dates: start: 20080101
  10. OXYGEN [Concomitant]
     Indication: SYSTEMIC SCLEROSIS
     Route: 055
     Dates: start: 20100501

REACTIONS (1)
  - ANAEMIA [None]
